FAERS Safety Report 8291213-X (Version None)
Quarter: 2012Q2

REPORT INFORMATION
  Report Type: 
  Country: None (occurrence: None)
  Receive Date: 20120417
  Receipt Date: 20120409
  Transmission Date: 20120825
  Serious: Yes (Hospitalization, Other)
  Sender: FDA-Public Use
  Company Number: US-BAYER-2011-105647

PATIENT
  Age: 42 Year
  Sex: Female
  Weight: 81.633 kg

DRUGS (19)
  1. SENNA [Concomitant]
  2. NAPROXEN (ALEVE) [Concomitant]
  3. YAZ [Suspect]
     Indication: MIGRAINE
     Dosage: UNK
     Dates: start: 20080501, end: 20081101
  4. YASMIN [Suspect]
     Indication: ACNE
     Dosage: UNK
     Dates: start: 20021101, end: 20051001
  5. LORTAB [Concomitant]
  6. YASMIN [Suspect]
     Indication: MIGRAINE
     Dosage: UNK
     Dates: start: 20060501, end: 20070101
  7. ASPIRIN [Concomitant]
  8. LEVAQUIN [Concomitant]
     Indication: PNEUMONIA
  9. YASMIN [Suspect]
     Dosage: UNK
     Dates: start: 20070701, end: 20070901
  10. PERCOCET [Concomitant]
  11. DARVOCET [Concomitant]
  12. LEXAPRO [Concomitant]
     Indication: STRESS
     Dosage: UNK
     Dates: start: 20040801, end: 20081101
  13. ALBUTEROL [Concomitant]
     Indication: DYSPNOEA
  14. LEVAQUIN [Concomitant]
     Indication: COUGH
     Dosage: UNK
     Dates: start: 20081001, end: 20081101
  15. YAZ [Suspect]
     Indication: ACNE
     Dosage: UNK
     Dates: start: 20070201, end: 20070701
  16. PROTONIX [Concomitant]
     Indication: GASTRITIS
     Dosage: UNK
     Dates: start: 20060601, end: 20081101
  17. ATIVAN [Concomitant]
     Indication: ATTENTION DEFICIT/HYPERACTIVITY DISORDER
  18. BENZONATATE [Concomitant]
     Indication: COUGH
     Dosage: UNK
     Dates: start: 20081001, end: 20081101
  19. LEXAPRO [Concomitant]
     Indication: DEPRESSION

REACTIONS (14)
  - DEEP VEIN THROMBOSIS [None]
  - PULMONARY INFARCTION [None]
  - CARDIAC FLUTTER [None]
  - PAIN [None]
  - BACK PAIN [None]
  - HYPERHIDROSIS [None]
  - PULMONARY EMBOLISM [None]
  - GENERAL PHYSICAL HEALTH DETERIORATION [None]
  - OEDEMA PERIPHERAL [None]
  - COUGH [None]
  - DYSPNOEA [None]
  - ANXIETY [None]
  - EMOTIONAL DISTRESS [None]
  - FATIGUE [None]
